FAERS Safety Report 8793729 (Version 1)
Quarter: 2012Q4

REPORT INFORMATION
  Report Type: 
  Country: US (occurrence: US)
  Receive Date: 20120917
  Receipt Date: 20120917
  Transmission Date: 20130627
  Serious: No
  Sender: FDA-Public Use
  Company Number: US-ASTRAZENECA-2012SE64975

PATIENT
  Age: 63 Year
  Sex: Female

DRUGS (3)
  1. RHINOCORT AQUA [Suspect]
     Route: 045
  2. CRESTOR [Concomitant]
  3. NEXIUM [Concomitant]

REACTIONS (2)
  - Feeling abnormal [Unknown]
  - Drug ineffective [Unknown]
